FAERS Safety Report 17223759 (Version 3)
Quarter: 2020Q3

REPORT INFORMATION
  Report Type: Report from Study
  Country: JP (occurrence: JP)
  Receive Date: 20200102
  Receipt Date: 20200927
  Transmission Date: 20201102
  Serious: Yes (Other)
  Sender: FDA-Public Use
  Company Number: JP-BEH-2019111180

PATIENT
  Age: 15 Year
  Sex: Male
  Weight: 61.9 kg

DRUGS (33)
  1. IDELVION [Suspect]
     Active Substance: COAGULATION FACTOR IX RECOMBINANT HUMAN
     Indication: FACTOR IX DEFICIENCY
     Dosage: 2000 INTERNATIONAL UNIT, QW
     Route: 042
     Dates: start: 20171118, end: 20180121
  2. IDELVION [Suspect]
     Active Substance: COAGULATION FACTOR IX RECOMBINANT HUMAN
     Dosage: 2000 INTERNATIONAL UNIT, QW
     Route: 042
     Dates: start: 20180401, end: 20180415
  3. IDELVION [Suspect]
     Active Substance: COAGULATION FACTOR IX RECOMBINANT HUMAN
     Dosage: 2000 INTERNATIONAL UNIT, QW
     Route: 042
     Dates: start: 20180429, end: 20180513
  4. NOVACT M FUJISAWA [Concomitant]
     Indication: HAEMORRHAGE
     Dosage: UNK
     Route: 065
     Dates: start: 20180130, end: 20180130
  5. IDELVION [Suspect]
     Active Substance: COAGULATION FACTOR IX RECOMBINANT HUMAN
     Indication: FACTOR IX DEFICIENCY
     Dosage: 2000 INTERNATIONAL UNIT, QW
     Route: 042
     Dates: start: 20171118, end: 20180121
  6. IDELVION [Suspect]
     Active Substance: COAGULATION FACTOR IX RECOMBINANT HUMAN
     Dosage: 3000 INTERNATIONAL UNIT, QW
     Route: 042
     Dates: start: 20180601
  7. IDELVION [Suspect]
     Active Substance: COAGULATION FACTOR IX RECOMBINANT HUMAN
     Dosage: 2000 INTERNATIONAL UNIT, QW
     Route: 042
     Dates: start: 20180429, end: 20180513
  8. NOVACT M FUJISAWA [Concomitant]
     Dosage: UNK
     Route: 065
     Dates: start: 20180426, end: 20180426
  9. SODIUM PICOSULFATE [Concomitant]
     Active Substance: SODIUM PICOSULFATE
     Route: 048
  10. ROZEREM [Concomitant]
     Active Substance: RAMELTEON
     Route: 048
  11. IDELVION [Suspect]
     Active Substance: COAGULATION FACTOR IX RECOMBINANT HUMAN
     Dosage: 2000 INTERNATIONAL UNIT, QD
     Route: 042
     Dates: start: 20180225, end: 20180225
  12. IDELVION [Suspect]
     Active Substance: COAGULATION FACTOR IX RECOMBINANT HUMAN
     Dosage: 2000 INTERNATIONAL UNIT, QD
     Route: 042
     Dates: start: 20180325, end: 20180325
  13. IDELVION [Suspect]
     Active Substance: COAGULATION FACTOR IX RECOMBINANT HUMAN
     Dosage: 2000 INTERNATIONAL UNIT, QD
     Route: 042
     Dates: start: 20180422, end: 20180422
  14. NOVACT M FUJISAWA [Concomitant]
     Dosage: UNK
     Route: 065
     Dates: start: 20180328, end: 20180328
  15. HAEMOLEX [Concomitant]
     Route: 065
  16. DEPAKENE [VALPROATE SODIUM] [Concomitant]
     Active Substance: VALPROATE SODIUM
     Route: 048
  17. IDELVION [Suspect]
     Active Substance: COAGULATION FACTOR IX RECOMBINANT HUMAN
     Dosage: 2000 INTERNATIONAL UNIT, QD
     Route: 042
     Dates: start: 20180225, end: 20180225
  18. IDELVION [Suspect]
     Active Substance: COAGULATION FACTOR IX RECOMBINANT HUMAN
     Dosage: 2000 INTERNATIONAL UNIT, QD
     Route: 042
     Dates: start: 20180325, end: 20180325
  19. L?CARBOCYSTEINE [Concomitant]
     Active Substance: CARBOCYSTEINE
     Route: 048
  20. IDELVION [Suspect]
     Active Substance: COAGULATION FACTOR IX RECOMBINANT HUMAN
     Indication: HAEMORRHAGE PROPHYLAXIS
     Dosage: 2000 INTERNATIONAL UNIT, QD
     Route: 042
     Dates: start: 20180128, end: 20180128
  21. IDELVION [Suspect]
     Active Substance: COAGULATION FACTOR IX RECOMBINANT HUMAN
     Indication: HAEMORRHAGE PROPHYLAXIS
     Dosage: 2000 INTERNATIONAL UNIT, QD
     Route: 042
     Dates: start: 20180128, end: 20180128
  22. IDELVION [Suspect]
     Active Substance: COAGULATION FACTOR IX RECOMBINANT HUMAN
     Dosage: 2000 INTERNATIONAL UNIT, QW
     Route: 042
     Dates: start: 20180304, end: 20180318
  23. IDELVION [Suspect]
     Active Substance: COAGULATION FACTOR IX RECOMBINANT HUMAN
     Dosage: 2000 INTERNATIONAL UNIT, QW
     Route: 042
     Dates: start: 20180304, end: 20180318
  24. IDELVION [Suspect]
     Active Substance: COAGULATION FACTOR IX RECOMBINANT HUMAN
     Dosage: 2000 INTERNATIONAL UNIT, QD
     Route: 042
     Dates: start: 20180422, end: 20180422
  25. AMBROXOL HYDROCHLORIDE [Concomitant]
     Active Substance: AMBROXOL HYDROCHLORIDE
     Route: 048
  26. IDELVION [Suspect]
     Active Substance: COAGULATION FACTOR IX RECOMBINANT HUMAN
     Indication: TRAUMATIC HAEMORRHAGE
     Dosage: 2000 INTERNATIONAL UNIT, QW
     Route: 042
     Dates: start: 20180204, end: 20180218
  27. IDELVION [Suspect]
     Active Substance: COAGULATION FACTOR IX RECOMBINANT HUMAN
     Dosage: 2000 INTERNATIONAL UNIT, QW
     Route: 042
     Dates: start: 20180401, end: 20180415
  28. IDELVION [Suspect]
     Active Substance: COAGULATION FACTOR IX RECOMBINANT HUMAN
     Indication: TRAUMATIC HAEMORRHAGE
     Dosage: 2000 INTERNATIONAL UNIT, QW
     Route: 042
     Dates: start: 20180204, end: 20180218
  29. IDELVION [Suspect]
     Active Substance: COAGULATION FACTOR IX RECOMBINANT HUMAN
     Dosage: 3000 INTERNATIONAL UNIT, QW
     Route: 042
     Dates: start: 20180601
  30. FEXOFENADINE HYDROCHLORIDE. [Concomitant]
     Active Substance: FEXOFENADINE HYDROCHLORIDE
     Route: 048
  31. LIVOSTIN [Concomitant]
     Active Substance: LEVOCABASTINE HYDROCHLORIDE
     Route: 065
  32. RAPIACTA [Concomitant]
     Active Substance: PERAMIVIR
     Dosage: UNK
     Route: 065
     Dates: start: 20180228, end: 20180228
  33. MYSTAN [Concomitant]
     Active Substance: CLOBAZAM
     Route: 048

REACTIONS (6)
  - Limb crushing injury [Unknown]
  - Epistaxis [Recovered/Resolved]
  - Contusion [Recovered/Resolved]
  - Haemarthrosis [Recovered/Resolved]
  - Influenza [Recovered/Resolved]
  - Traumatic haemorrhage [Recovered/Resolved]

NARRATIVE: CASE EVENT DATE: 20180130
